FAERS Safety Report 18940331 (Version 1)
Quarter: 2021Q1

REPORT INFORMATION
  Report Type: Spontaneous
  Country: US (occurrence: US)
  Receive Date: 20210225
  Receipt Date: 20210225
  Transmission Date: 20210420
  Serious: Yes (Disabling)
  Sender: FDA-Public Use
  Company Number: US-INTRA-CELLULAR THERAPIES, INC.-2021ICT00087

PATIENT
  Age: 42 Year
  Sex: Female
  Weight: 78.46 kg

DRUGS (3)
  1. CYMBALTA [Concomitant]
     Active Substance: DULOXETINE HYDROCHLORIDE
  2. VITAMIN D [Concomitant]
     Active Substance: VITAMIN D NOS
  3. CAPLYTA [Suspect]
     Active Substance: LUMATEPERONE
     Indication: SCHIZOAFFECTIVE DISORDER
     Dosage: 42 MG, 1X/DAY
     Route: 048
     Dates: start: 20201206, end: 20210120

REACTIONS (8)
  - Disturbance in attention [Not Recovered/Not Resolved]
  - Off label use [Recovered/Resolved]
  - Ill-defined disorder [Recovering/Resolving]
  - Somnolence [Recovered/Resolved]
  - Abdominal discomfort [Not Recovered/Not Resolved]
  - Loss of personal independence in daily activities [Not Recovered/Not Resolved]
  - Liver disorder [Unknown]
  - Urinary tract infection [Unknown]

NARRATIVE: CASE EVENT DATE: 20201206
